FAERS Safety Report 12185767 (Version 10)
Quarter: 2024Q4

REPORT INFORMATION
  Report Type: Spontaneous
  Country: US (occurrence: US)
  Receive Date: 20160316
  Receipt Date: 20241223
  Transmission Date: 20250115
  Serious: Yes (Other)
  Sender: MERCK
  Company Number: US-009507513-1603USA007208

PATIENT

DRUGS (2)
  1. SIVEXTRO [Interacting]
     Active Substance: TEDIZOLID PHOSPHATE
     Indication: Mycobacterial infection
     Dosage: UNK
     Route: 048
  2. METOCLOPRAMIDE [Interacting]
     Active Substance: METOCLOPRAMIDE
     Dosage: UNK

REACTIONS (12)
  - Serotonin syndrome [Unknown]
  - Thrombocytopenia [Unknown]
  - Neuropathy peripheral [Recovered/Resolved]
  - Drug interaction [Unknown]
  - Dystonia [Unknown]
  - Hepatic enzyme abnormal [Unknown]
  - Anaemia [Unknown]
  - Diarrhoea [Unknown]
  - Nausea [Unknown]
  - Vomiting [Unknown]
  - Lymphopenia [Unknown]
  - Off label use [Unknown]
